FAERS Safety Report 20695514 (Version 4)
Quarter: 2022Q4

REPORT INFORMATION
  Report Type: Spontaneous
  Country: US (occurrence: US)
  Receive Date: 20220411
  Receipt Date: 20221228
  Transmission Date: 20230113
  Serious: Yes (Hospitalization)
  Sender: FDA-Public Use
  Company Number: US-CHEMOCENTRYX, INC.-2022USCCXI0071

PATIENT

DRUGS (7)
  1. TAVNEOS [Suspect]
     Active Substance: AVACOPAN
     Indication: Granulomatosis with polyangiitis
     Dosage: 30 MG, 2X/DAY WITH FOOD
     Route: 048
     Dates: start: 20220120, end: 2022
  2. TAVNEOS [Suspect]
     Active Substance: AVACOPAN
     Indication: Nephropathy
     Dosage: ^HALF DOSE^ 30 MG DAILYWITH FOOD
     Route: 048
     Dates: start: 2022, end: 2022
  3. TAVNEOS [Suspect]
     Active Substance: AVACOPAN
     Dosage: 30 MG, 1X/DAY AT BEDTIME
     Route: 048
     Dates: start: 2022, end: 2022
  4. TAVNEOS [Suspect]
     Active Substance: AVACOPAN
     Dosage: 50 MG, 1X/DAY AT BEDTIME
     Route: 048
     Dates: start: 2022, end: 2022
  5. TAVNEOS [Suspect]
     Active Substance: AVACOPAN
     Dosage: 20 MG IN THE MORNING, AND 30 MG AT NIGHT
     Route: 048
     Dates: start: 2022, end: 202210
  6. TAVNEOS [Suspect]
     Active Substance: AVACOPAN
     Dosage: 30 MG, 2X/DAY WITH FOOD
     Route: 048
     Dates: start: 2022, end: 2022
  7. UNSPECIFIED INGREDIENT [Suspect]
     Active Substance: UNSPECIFIED INGREDIENT
     Indication: Product used for unknown indication
     Dosage: UNK
     Route: 065

REACTIONS (4)
  - White blood cell count decreased [Unknown]
  - Headache [Unknown]
  - Off label use [Recovered/Resolved]
  - Product dose omission issue [Unknown]

NARRATIVE: CASE EVENT DATE: 20220101
